FAERS Safety Report 21978658 (Version 1)
Quarter: 2023Q1

REPORT INFORMATION
  Report Type: Spontaneous
  Country: JP (occurrence: None)
  Receive Date: 20230210
  Receipt Date: 20230210
  Transmission Date: 20230417
  Serious: Yes (Death)
  Sender: FDA-Public Use
  Company Number: 2023A033491

PATIENT
  Age: 60 Year
  Sex: Male

DRUGS (1)
  1. ONDEXXYA [Suspect]
     Active Substance: ANDEXANET ALFA
     Indication: Cerebral haemorrhage
     Dosage: INTRAVENOUS ADMINISTRATION OF 800 MG AT 30 MG/MIN FOLLOWED BY 960 MG AT 8 MG/MIN IN 2 HRS
     Route: 042
     Dates: start: 20230206, end: 20230206

REACTIONS (1)
  - Death [Fatal]

NARRATIVE: CASE EVENT DATE: 20230206
